FAERS Safety Report 9842278 (Version 1)
Quarter: 2014Q1

REPORT INFORMATION
  Report Type: Spontaneous
  Country: US (occurrence: US)
  Receive Date: 20140124
  Receipt Date: 20140124
  Transmission Date: 20141002
  Serious: Yes (Hospitalization)
  Sender: FDA-Public Use
  Company Number: US-TEVA-457687USA

PATIENT
  Age: 75 Year
  Sex: Female

DRUGS (5)
  1. ROPINIROLE [Suspect]
     Indication: PARKINSON^S DISEASE
     Dosage: 9 MILLIGRAM DAILY;
     Route: 048
  2. REQUIP [Suspect]
     Indication: PARKINSON^S DISEASE
     Dosage: 12 MILLIGRAM DAILY;
     Route: 048
  3. SYNTHROID [Concomitant]
  4. AMANTADINE [Concomitant]
  5. CO-CARELDOPA [Concomitant]

REACTIONS (6)
  - Hip fracture [Unknown]
  - Depression [Unknown]
  - Drug effect decreased [Unknown]
  - Drug ineffective [Unknown]
  - Malaise [Unknown]
  - Syncope [Unknown]
